FAERS Safety Report 6946917-5 (Version None)
Quarter: 2010Q3

REPORT INFORMATION
  Report Type: 
  Country: None (occurrence: None)
  Receive Date: 20100827
  Receipt Date: 20090817
  Transmission Date: 20110219
  Serious: No
  Sender: FDA-Public Use
  Company Number: US-ABBOTT-09P-163-0592683-00

PATIENT
  Sex: Female
  Weight: 96.248 kg

DRUGS (16)
  1. NIASPAN [Suspect]
     Indication: LOW DENSITY LIPOPROTEIN INCREASED
     Route: 048
     Dates: start: 20090806, end: 20090807
  2. TACTURNA [Concomitant]
     Indication: HYPERTENSION
  3. ZINC [Concomitant]
     Indication: MEDICAL DIET
  4. CALCIUM [Concomitant]
     Indication: MINERAL SUPPLEMENTATION
  5. FISH OIL [Concomitant]
     Indication: MEDICAL DIET
  6. ZETIA [Concomitant]
     Indication: PRODUCT USED FOR UNKNOWN INDICATION
  7. ASPIRIN [Concomitant]
     Indication: PRODUCT USED FOR UNKNOWN INDICATION
  8. DITEX [Concomitant]
     Indication: VITAMIN SUPPLEMENTATION
  9. CRESTOR [Concomitant]
     Indication: PRODUCT USED FOR UNKNOWN INDICATION
  10. METOPROLOL [Concomitant]
     Indication: PRODUCT USED FOR UNKNOWN INDICATION
  11. HYZAAR [Concomitant]
     Indication: PRODUCT USED FOR UNKNOWN INDICATION
  12. PROTONIX [Concomitant]
     Indication: GASTRIC DISORDER
  13. PAROXETINE HCL [Concomitant]
     Indication: ANXIOLYTIC THERAPY
  14. CLONAZEPAM [Concomitant]
     Indication: PRODUCT USED FOR UNKNOWN INDICATION
     Dosage: 1 IN 1 DAY AT BEDTIME
  15. ROPINIROLE [Concomitant]
     Indication: RESTLESS LEGS SYNDROME
  16. TYLENOL-500 [Concomitant]
     Indication: PRODUCT USED FOR UNKNOWN INDICATION

REACTIONS (3)
  - FLUSHING [None]
  - INCORRECT DRUG ADMINISTRATION DURATION [None]
  - PRURITUS [None]
